FAERS Safety Report 6403939-0 (Version None)
Quarter: 2009Q4

REPORT INFORMATION
  Report Type: 
  Country: None (occurrence: None)
  Receive Date: 20091015
  Receipt Date: 20091015
  Transmission Date: 20100525
  Serious: No
  Sender: FDA-Public Use
  Company Number: None

PATIENT
  Sex: Female

DRUGS (1)
  1. ONDANSETRON 4MG/2ML VIAL APP PHARMACEUTICALS, LLC [Suspect]
     Indication: NAUSEA
     Dosage: 4 MG ONCE IV
     Route: 042
     Dates: start: 20090918

REACTIONS (2)
  - ANXIETY [None]
  - RESTLESSNESS [None]
